FAERS Safety Report 10799118 (Version 1)
Quarter: 2015Q1

REPORT INFORMATION
  Report Type: Spontaneous
  Country: US (occurrence: US)
  Receive Date: 20150216
  Receipt Date: 20150216
  Transmission Date: 20150721
  Serious: No
  Sender: FDA-Public Use
  Company Number: US-ALLERGAN-1403501US

PATIENT
  Sex: Female

DRUGS (5)
  1. RESTASIS [Suspect]
     Active Substance: CYCLOSPORINE
     Indication: PRODUCT USED FOR UNKNOWN INDICATION
     Dosage: 2 GTT, BID
     Route: 047
  2. BLOOD THINNER [Concomitant]
     Active Substance: UNSPECIFIED INGREDIENT
     Indication: CARDIAC OPERATION
     Dosage: UNK
     Dates: start: 2010
  3. HEART PILL [Concomitant]
     Indication: CARDIAC OPERATION
     Dosage: UNK
     Dates: start: 2010
  4. WATER PILL [Concomitant]
     Active Substance: UNSPECIFIED INGREDIENT
     Indication: CARDIAC OPERATION
     Dosage: UNK
     Dates: start: 2010
  5. CHOLESTEROL PILL [Concomitant]
     Active Substance: UNSPECIFIED INGREDIENT
     Indication: BLOOD CHOLESTEROL INCREASED
     Dosage: UNK
     Dates: start: 2010

REACTIONS (2)
  - Drug ineffective [Unknown]
  - Lacrimation increased [Unknown]
